APPROVED DRUG PRODUCT: PINDAC
Active Ingredient: PINACIDIL
Strength: 25MG
Dosage Form/Route: CAPSULE, EXTENDED RELEASE;ORAL
Application: N019456 | Product #002
Applicant: LEO PHARMACEUTICAL PRODUCTS LTD
Approved: Dec 28, 1989 | RLD: No | RS: No | Type: DISCN